FAERS Safety Report 17801646 (Version 1)
Quarter: 2020Q2

REPORT INFORMATION
  Report Type: Spontaneous
  Country: DE (occurrence: DE)
  Receive Date: 20200519
  Receipt Date: 20200519
  Transmission Date: 20200714
  Serious: Yes (Hospitalization)
  Sender: FDA-Public Use
  Company Number: DE-GP-PHARM S.A.-2083945

PATIENT
  Sex: Male
  Weight: 77.1 kg

DRUGS (2)
  1. LUTRATE DEPOT [Suspect]
     Active Substance: LEUPROLIDE ACETATE
     Indication: PROSTATE CANCER
     Route: 030
     Dates: start: 20190919
  2. NAOK THERAPY (NEW ORAL ANTICOAGULANTS) WITH ENDOXABAN [Concomitant]
     Dates: start: 20200224

REACTIONS (3)
  - Aphasia [Recovered/Resolved]
  - Myocardial infarction [Recovered/Resolved]
  - Facial paresis [Recovered/Resolved]

NARRATIVE: CASE EVENT DATE: 20200224
